FAERS Safety Report 5171065-7 (Version None)
Quarter: 2006Q4

REPORT INFORMATION
  Report Type: 
  Country: None (occurrence: None)
  Receive Date: 20061213
  Receipt Date: 20061208
  Transmission Date: 20070319
  Serious: Yes (Hospitalization)
  Sender: FDA-Public Use
  Company Number: US-GLAXOSMITHKLINE-A0630961A

PATIENT
  Sex: Female

DRUGS (10)
  1. COREG [Suspect]
     Dosage: 6.25MG TWICE PER DAY
     Route: 048
  2. CHEMOTHERAPY [Suspect]
     Indication: BREAST CANCER
     Dates: start: 20020101, end: 20040101
  3. TIKOSYN [Concomitant]
  4. DIGOXIN [Concomitant]
  5. COUMADIN [Concomitant]
  6. LASIX [Concomitant]
  7. GLUCOSAMINE [Concomitant]
  8. TAMOXIFEN CITRATE [Concomitant]
  9. MULTI-VITAMIN [Concomitant]
  10. TYLENOL [Concomitant]

REACTIONS (5)
  - CARDIAC ARREST [None]
  - CARDIAC FAILURE [None]
  - DIZZINESS [None]
  - DYSPNOEA [None]
  - FATIGUE [None]
